FAERS Safety Report 5280768-5 (Version None)
Quarter: 2007Q1

REPORT INFORMATION
  Report Type: 
  Country: None (occurrence: None)
  Receive Date: 20070329
  Receipt Date: 20070319
  Transmission Date: 20070707
  Serious: Yes (Other)
  Sender: FDA-Public Use
  Company Number: CA-PFIZER INC-2007009869

PATIENT
  Sex: Male

DRUGS (4)
  1. LYRICA [Suspect]
     Indication: PAIN
     Route: 048
     Dates: start: 20070117, end: 20070206
  2. PANTOPRAZOLE SODIUM [Concomitant]
  3. ACETAMINOPHEN W/ CODEINE [Concomitant]
  4. NAPROSYN [Concomitant]

REACTIONS (12)
  - ASTHENIA [None]
  - BLOOD PRESSURE DECREASED [None]
  - BURNING SENSATION [None]
  - CHEST PAIN [None]
  - CHROMATURIA [None]
  - DIABETES MELLITUS [None]
  - DIZZINESS [None]
  - PRURITUS [None]
  - RASH PAPULAR [None]
  - THIRST [None]
  - VISION BLURRED [None]
  - VOMITING [None]
